FAERS Safety Report 10751516 (Version 1)
Quarter: 2015Q1

REPORT INFORMATION
  Report Type: Spontaneous
  Country: US (occurrence: None)
  Receive Date: 20150126
  Receipt Date: 20150126
  Transmission Date: 20150721
  Serious: Yes (Other)
  Sender: FDA-Public Use
  Company Number: MC201300219

PATIENT
  Age: 66 Year
  Sex: Female
  Weight: 58.95 kg

DRUGS (2)
  1. ASPIRIN (ACETYLSALICYLIC ACID) [Concomitant]
     Active Substance: ASPIRIN
  2. ANGIOMAX [Suspect]
     Active Substance: BIVALIRUDIN
     Indication: PERCUTANEOUS CORONARY INTERVENTION
     Dosage: 0.75 MG/KG, BOLUS (8.85 CC) (0.75 MG/KG,BOLUS), INTRAVENOUS (NOT OTHERWISE SPECIFIED)
     Dates: start: 20130426, end: 20130426

REACTIONS (2)
  - Thrombosis in device [None]
  - Chest pain [None]

NARRATIVE: CASE EVENT DATE: 20130426
